FAERS Safety Report 17562358 (Version 1)
Quarter: 2020Q1

REPORT INFORMATION
  Report Type: Spontaneous
  Country: US (occurrence: US)
  Receive Date: 20200319
  Receipt Date: 20200319
  Transmission Date: 20200409
  Serious: No
  Sender: FDA-Public Use
  Company Number: US-KALA PHARAMACEUTICALS-2020KLA00004

PATIENT

DRUGS (1)
  1. INVELTYS [Suspect]
     Active Substance: LOTEPREDNOL ETABONATE
     Indication: CATARACT OPERATION
     Dosage: UNK UNK, 2X/DAY
     Route: 047

REACTIONS (6)
  - Ocular hyperaemia [Recovered/Resolved]
  - Rash [Recovered/Resolved]
  - Eye discharge [Recovered/Resolved]
  - Allergic reaction to excipient [Recovered/Resolved]
  - Eye pruritus [Recovered/Resolved]
  - Product prescribing issue [Recovered/Resolved]
